FAERS Safety Report 18214022 (Version 1)
Quarter: 2020Q3

REPORT INFORMATION
  Report Type: Spontaneous
  Country: IT (occurrence: IT)
  Receive Date: 20200831
  Receipt Date: 20200831
  Transmission Date: 20201103
  Serious: Yes (Other)
  Sender: FDA-Public Use
  Company Number: IT-BRACCO-2020IT03475

PATIENT
  Age: 59 Year
  Sex: Male

DRUGS (1)
  1. GADOTERIDOL [Suspect]
     Active Substance: GADOTERIDOL
     Indication: MAGNETIC RESONANCE IMAGING
     Dosage: 56.6 MG/KG, SINGLE
     Route: 042
     Dates: start: 20200731, end: 20200731

REACTIONS (2)
  - Tonsillar hypertrophy [Recovered/Resolved]
  - Dysphagia [Recovered/Resolved]

NARRATIVE: CASE EVENT DATE: 20200731
